FAERS Safety Report 7783666-8 (Version None)
Quarter: 2011Q3

REPORT INFORMATION
  Report Type: 
  Country: None (occurrence: None)
  Receive Date: 20110926
  Receipt Date: 20110919
  Transmission Date: 20111222
  Serious: Yes (Life-Threatening, Other)
  Sender: FDA-Public Use
  Company Number: 2011SP035568

PATIENT
  Age: 41 Year
  Sex: Female
  Weight: 63 kg

DRUGS (3)
  1. SYCREST (ASENAPINE) [Suspect]
     Indication: BIPOLAR DISORDER
     Dosage: 20 MG;QD;PO
     Route: 048
     Dates: start: 20110728
  2. ESCITALOPRAM [Concomitant]
  3. LAMOTRIGINE [Concomitant]

REACTIONS (6)
  - PAIN [None]
  - SYNCOPE [None]
  - ALTERED STATE OF CONSCIOUSNESS [None]
  - MYOSITIS [None]
  - FALL [None]
  - INCORRECT ROUTE OF DRUG ADMINISTRATION [None]
